FAERS Safety Report 21545060 (Version 1)
Quarter: 2022Q4

REPORT INFORMATION
  Report Type: Spontaneous
  Country: US (occurrence: US)
  Receive Date: 20221103
  Receipt Date: 20221103
  Transmission Date: 20230113
  Serious: Yes (Hospitalization)
  Sender: FDA-Public Use
  Company Number: US-STRIDES ARCOLAB LIMITED-2022SP014424

PATIENT
  Age: 60 Year
  Sex: Male

DRUGS (1)
  1. METHOTREXATE [Suspect]
     Active Substance: METHOTREXATE
     Indication: Product used for unknown indication
     Dosage: 15 MILLIGRAM PER DAY
     Route: 065

REACTIONS (6)
  - Wrong product administered [Unknown]
  - Stomatitis [Recovered/Resolved]
  - Skin lesion [Recovered/Resolved]
  - Skin ulcer [Recovered/Resolved]
  - Swollen tongue [Recovered/Resolved]
  - Toxicity to various agents [Recovered/Resolved]
